FAERS Safety Report 24539576 (Version 1)
Quarter: 2024Q4

REPORT INFORMATION
  Report Type: Spontaneous
  Country: US (occurrence: None)
  Receive Date: 20241022
  Receipt Date: 20241022
  Transmission Date: 20250115
  Serious: Yes (Hospitalization)
  Sender: Public
  Company Number: None

PATIENT
  Age: 14 Year
  Sex: Female
  Weight: 103.5 kg

DRUGS (14)
  1. COMPAZINE [Suspect]
     Active Substance: PROCHLORPERAZINE MALEATE
     Indication: Headache
     Dosage: OTHER QUANTITY : 1 TABLET(S);?FREQUENCY : TWICE A DAY;?
     Route: 048
     Dates: start: 20241010, end: 20241013
  2. SUMATRIPTAN [Suspect]
     Active Substance: SUMATRIPTAN
  3. NAPROXEN [Suspect]
     Active Substance: NAPROXEN
  4. BENADRYL [Suspect]
     Active Substance: DIPHENHYDRAMINE HYDROCHLORIDE
  5. FLUOXETINE [Concomitant]
     Active Substance: FLUOXETINE HYDROCHLORIDE
  6. NORETHINDRONE [Concomitant]
     Active Substance: NORETHINDRONE
  7. TOPAMAX [Concomitant]
     Active Substance: TOPIRAMATE
  8. Nerivio device [Concomitant]
  9. MELOXICAM [Concomitant]
     Active Substance: MELOXICAM
  10. Claratin [Concomitant]
  11. VITAMIN D3 [Concomitant]
     Active Substance: CHOLECALCIFEROL
  12. VIT B2 [Concomitant]
  13. MAGNESIUM [Concomitant]
     Active Substance: MAGNESIUM
  14. IRON [Concomitant]
     Active Substance: IRON

REACTIONS (8)
  - Nonspecific reaction [None]
  - Muscle spasms [None]
  - Dyskinesia [None]
  - Trismus [None]
  - Fear [None]
  - Therapeutic product effect decreased [None]
  - Dyspnoea [None]
  - Oral disorder [None]

NARRATIVE: CASE EVENT DATE: 20241013
